FAERS Safety Report 10142105 (Version 2)
Quarter: 2014Q2

REPORT INFORMATION
  Report Type: Report from Study
  Country: US (occurrence: US)
  Receive Date: 20140429
  Receipt Date: 20140429
  Transmission Date: 20141212
  Serious: Yes (Hospitalization)
  Sender: FDA-Public Use
  Company Number: US-CELGENEUS-163-10004-13014754

PATIENT
  Age: 57 Year
  Sex: Male
  Weight: 106.87 kg

DRUGS (47)
  1. CC-10004 [Suspect]
     Indication: PSORIATIC ARTHROPATHY
     Dosage: 60 MILLIGRAM
     Route: 048
     Dates: start: 20110622
  2. CC-10004 [Suspect]
     Dosage: 60 MILLIGRAM
     Route: 048
     Dates: end: 20130127
  3. METHOTREXATE [Concomitant]
     Indication: PSORIATIC ARTHROPATHY
     Route: 065
     Dates: start: 20071217, end: 20110103
  4. METHOTREXATE [Concomitant]
     Route: 065
     Dates: start: 20110110, end: 20130128
  5. FOLIC ACID [Concomitant]
     Indication: SUPPLEMENTATION THERAPY
     Route: 048
     Dates: start: 20071217
  6. FLUOCINONIDE [Concomitant]
     Indication: PSORIATIC ARTHROPATHY
     Route: 065
     Dates: start: 2004, end: 20110126
  7. LOTREL5/20 [Concomitant]
     Indication: HYPERTENSION
     Route: 065
     Dates: start: 1996
  8. PAXIL [Concomitant]
     Indication: DEPRESSION
     Route: 065
     Dates: start: 2008
  9. LEVOTHYROXINE SODIUM [Concomitant]
     Indication: HYPOTHYROIDISM
     Route: 065
     Dates: start: 2001, end: 20121113
  10. LEVOTHYROXINE SODIUM [Concomitant]
     Dosage: 88 MICROGRAM
     Route: 048
  11. LEVOTHYROXINE SODIUM [Concomitant]
     Dosage: 100 MICROGRAM
     Route: 065
  12. LEVOTHYROXINE SODIUM [Concomitant]
     Route: 065
     Dates: start: 20121113
  13. LEVOTHYROXINE SODIUM [Concomitant]
     Route: 065
     Dates: start: 20121113
  14. IBUPROFEN [Concomitant]
     Indication: ARTHRALGIA
     Route: 065
     Dates: start: 1991, end: 20110523
  15. IBUPROFEN [Concomitant]
     Indication: ARTHRALGIA
     Route: 065
     Dates: start: 20110524
  16. METOPROLOL [Concomitant]
     Indication: HYPERTENSION
     Route: 065
     Dates: start: 1996, end: 20110705
  17. METOPROLOL [Concomitant]
     Route: 065
     Dates: start: 20110706, end: 20111014
  18. AMLODIPINE/BENAZEPRIL [Concomitant]
     Indication: PRODUCT USED FOR UNKNOWN INDICATION
     Dosage: 5MG/20MG
     Route: 048
  19. BYSTOLIC [Concomitant]
     Indication: HYPERTENSION
     Dosage: 10 MILLIGRAM
     Route: 048
     Dates: start: 20111015
  20. LASIX [Concomitant]
     Indication: HYPERTENSION
     Dosage: 20 MILLIGRAM
     Route: 048
     Dates: start: 1996
  21. COENZYME Q10 W/MEGA EFA AND HAWTHORNE [Concomitant]
     Indication: PRODUCT USED FOR UNKNOWN INDICATION
     Dosage: 1 CAPSULE
     Route: 048
  22. FOLATE [Concomitant]
     Indication: PRODUCT USED FOR UNKNOWN INDICATION
     Route: 065
  23. PERCOCET [Concomitant]
     Indication: PRODUCT USED FOR UNKNOWN INDICATION
     Dosage: 1 TO 2
     Route: 048
  24. ANTIBIOTICS [Concomitant]
     Indication: PYREXIA
     Route: 065
  25. Z-PAK [Concomitant]
     Indication: PYREXIA
     Route: 065
  26. Z-PAK [Concomitant]
     Indication: UPPER RESPIRATORY TRACT INFECTION
     Route: 065
     Dates: start: 20130115, end: 20130116
  27. LEVAQUIN [Concomitant]
     Indication: UPPER RESPIRATORY TRACT INFECTION
     Route: 065
     Dates: start: 20130121, end: 20130123
  28. MEDROL [Concomitant]
     Indication: PSORIASIS
     Dosage: OCCASIONAL DOSE PACK
     Route: 065
  29. MEDROL [Concomitant]
     Indication: TENDONITIS
     Route: 065
     Dates: start: 20120725, end: 20120729
  30. TYLENOL [Concomitant]
     Indication: PYREXIA
     Route: 065
     Dates: start: 2013
  31. OXYCODONE HCL [Concomitant]
     Indication: PAIN
     Dosage: 1950 MILLIGRAM
     Route: 048
  32. PAROXETINE HCL [Concomitant]
     Indication: PRODUCT USED FOR UNKNOWN INDICATION
     Dosage: 20 MILLIGRAM
     Route: 048
  33. DEPOTESTOSTERONE [Concomitant]
     Indication: HYPOGONADISM
     Route: 065
     Dates: start: 20130225
  34. ASPIRIN [Concomitant]
     Indication: PRODUCT USED FOR UNKNOWN INDICATION
     Route: 065
  35. VICODIN [Concomitant]
     Indication: ARTHRALGIA
     Dosage: 5/500MILLIGRAMS
     Route: 065
     Dates: start: 20110531
  36. XYLOCAINE [Concomitant]
     Indication: ARTHRALGIA
     Route: 065
     Dates: start: 20110919, end: 20110919
  37. XYLOCAINE [Concomitant]
     Route: 065
     Dates: start: 20111104, end: 20111104
  38. DEPO MEDROL [Concomitant]
     Indication: ARTHRALGIA
     Route: 065
     Dates: start: 20110919, end: 20110919
  39. DEPO MEDROL [Concomitant]
     Route: 065
     Dates: start: 20111104, end: 20111104
  40. AMOXIL [Concomitant]
     Indication: UPPER RESPIRATORY TRACT INFECTION
     Route: 065
     Dates: start: 20120109, end: 20120115
  41. ROBITUSSIN COUGH [Concomitant]
     Indication: UPPER RESPIRATORY TRACT INFECTION
     Route: 048
     Dates: start: 20120102, end: 20120115
  42. COENZYME Q10 [Concomitant]
     Indication: SUPPLEMENTATION THERAPY
     Route: 065
     Dates: start: 20000101
  43. HYDROCODONE HCL/ACETAMINOPHEN [Concomitant]
     Indication: ABDOMINAL PAIN
     Dosage: 5/325MG
     Route: 065
     Dates: start: 20130125, end: 20130201
  44. GADOLINIUM [Concomitant]
     Indication: PRODUCT USED FOR UNKNOWN INDICATION
     Route: 065
     Dates: start: 20130201, end: 20130201
  45. MAGNEVIST [Concomitant]
     Indication: PRODUCT USED FOR UNKNOWN INDICATION
     Route: 065
     Dates: start: 20130124, end: 20130124
  46. FDG [Concomitant]
     Indication: PRODUCT USED FOR UNKNOWN INDICATION
     Route: 065
     Dates: start: 20130129, end: 20130129
  47. OMNIPAQUE 350 [Concomitant]
     Indication: PRODUCT USED FOR UNKNOWN INDICATION
     Route: 065
     Dates: start: 20130329, end: 20130329

REACTIONS (1)
  - Pyrexia [Recovered/Resolved]
